FAERS Safety Report 4849981-2 (Version None)
Quarter: 2005Q4

REPORT INFORMATION
  Report Type: 
  Country: None (occurrence: None)
  Receive Date: 20051123
  Receipt Date: 20050131
  Transmission Date: 20060501
  Serious: Yes (Other)
  Sender: FDA-Public Use
  Company Number: 2005011088

PATIENT
  Age: 59 Year
  Sex: Male

DRUGS (14)
  1. LIPITOR [Suspect]
     Indication: HYPERLIPIDAEMIA
     Dates: start: 20040201, end: 20040914
  2. CINACALCET HYDROCHLORIDE (CINACALCET HYDROCHLORIDE) [Suspect]
     Indication: HYPERPARATHYROIDISM SECONDARY
     Dosage: 30 MG (1 IN 1 D),ORAL
     Route: 048
     Dates: start: 20040708, end: 20040914
  3. CALCIUM ACETATE (CALCIUM ACETATE) [Concomitant]
  4. TOCOPHEROL (TOCOPHEROL) [Concomitant]
  5. CETIRIZINE HCL [Concomitant]
  6. INSULIN HUMAN INJECTION, ISOPHANE (INSULIN HUMAN INJECTION, ISOPHANE) [Concomitant]
  7. INSULIN LISPRO (INSULIN LISPRO) [Concomitant]
  8. NIFEDIPINE [Concomitant]
  9. SODIUM BICARBONATE IN PLASTIC CONTAINER [Concomitant]
  10. CLONIDINE [Concomitant]
  11. WARFARIN SODIUM [Concomitant]
  12. ENALAPRIL MALEATE [Concomitant]
  13. DOXAZOSIN MESYLATE [Concomitant]
  14. FUROSEMIDE [Concomitant]

REACTIONS (3)
  - BLOOD ALKALINE PHOSPHATASE INCREASED [None]
  - HAEMOGLOBIN DECREASED [None]
  - HEPATIC ENZYME INCREASED [None]
